FAERS Safety Report 16724347 (Version 1)
Quarter: 2019Q3

REPORT INFORMATION
  Report Type: Spontaneous
  Country: PL (occurrence: PL)
  Receive Date: 20190821
  Receipt Date: 20190821
  Transmission Date: 20191005
  Serious: Yes (Other)
  Sender: FDA-Public Use
  Company Number: PL-ASTRAZENECA-2019SF17685

PATIENT
  Age: 86 Year
  Sex: Female

DRUGS (4)
  1. BETO [METOPROLOL SUCCINATE] [Suspect]
     Active Substance: METOPROLOL SUCCINATE
     Indication: PRODUCT USED FOR UNKNOWN INDICATION
     Route: 048
  2. ROSWERA [Suspect]
     Active Substance: ROSUVASTATIN
     Indication: BLOOD CHOLESTEROL INCREASED
     Route: 048
  3. RAENOM [Suspect]
     Active Substance: IVABRADINE
     Indication: PRODUCT USED FOR UNKNOWN INDICATION
     Dosage: 5.0MG UNKNOWN
     Route: 065
  4. VICEBROL [Suspect]
     Active Substance: VINPOCETINE
     Indication: DIZZINESS
     Route: 065

REACTIONS (7)
  - Malaise [Recovered/Resolved]
  - Ageusia [Unknown]
  - Dizziness [Unknown]
  - Blood pressure decreased [Unknown]
  - Feeling abnormal [Unknown]
  - Arrhythmia [Unknown]
  - Decreased appetite [Unknown]

NARRATIVE: CASE EVENT DATE: 201907
